FAERS Safety Report 10433504 (Version 2)
Quarter: 2015Q2

REPORT INFORMATION
  Report Type: Spontaneous
  Country: US (occurrence: US)
  Receive Date: 20140905
  Receipt Date: 20150415
  Transmission Date: 20150821
  Serious: Yes (Death, Other)
  Sender: FDA-Public Use
  Company Number: US-ROXANE LABORATORIES, INC.-2014-RO-01330RO

PATIENT
  Age: 73 Year
  Sex: Male
  Weight: 74.8 kg

DRUGS (7)
  1. MORPHINE [Suspect]
     Active Substance: MORPHINE
     Indication: PRODUCT USED FOR UNKNOWN INDICATION
     Route: 065
  2. ROXANOL [Concomitant]
     Active Substance: MORPHINE SULFATE
     Route: 065
  3. LASIX [Concomitant]
     Active Substance: FUROSEMIDE
     Route: 065
  4. POTASSIUM CHLORIDE. [Concomitant]
     Active Substance: POTASSIUM CHLORIDE
     Route: 065
  5. VOLMAX [Concomitant]
     Active Substance: ALBUTEROL SULFATE
     Route: 065
  6. PREDNISONE. [Concomitant]
     Active Substance: PREDNISONE
     Route: 065
  7. LANOXIN [Concomitant]
     Active Substance: DIGOXIN
     Route: 065

REACTIONS (4)
  - Dyspnoea [Unknown]
  - Non-small cell lung cancer stage IV [Fatal]
  - Throat tightness [Unknown]
  - Overdose [None]

NARRATIVE: CASE EVENT DATE: 20020423
